FAERS Safety Report 5031392-0 (Version None)
Quarter: 2006Q2

REPORT INFORMATION
  Report Type: 
  Country: None (occurrence: None)
  Receive Date: 20060616
  Receipt Date: 20060526
  Transmission Date: 20061013
  Serious: Yes (Hospitalization, Other)
  Sender: FDA-Public Use
  Company Number: NL200605001369

PATIENT
  Age: 47 Year
  Sex: Male

DRUGS (9)
  1. DROTRECOGIN ALFA (ACTIVATED) (DROTRECOGIN ALFA (ACTIVATED) UNKNOWN FOR [Suspect]
     Indication: SEPSIS
     Dosage: 24 IU/KG, EVERY HOUR, INTRAVENOUS
     Route: 042
     Dates: start: 20060429, end: 20060430
  2. NORADRENALINE (NOREPINEPHRINE) [Concomitant]
  3. DOBUTAMINE (DOBUTAMINE) [Concomitant]
  4. ACTRAPID HUMAN (INSULIN HUMAN) [Concomitant]
  5. DORMICUM (NITRAZEPAM) [Concomitant]
  6. SUFENTA [Concomitant]
  7. HYDROCORTISONE [Concomitant]
  8. GENTAMICIN [Concomitant]
  9. AUGMENTIN '125' [Concomitant]

REACTIONS (6)
  - ACTIVATED PARTIAL THROMBOPLASTIN TIME PROLONGED [None]
  - IMMUNE SYSTEM DISORDER [None]
  - MULTI-ORGAN FAILURE [None]
  - SEPSIS [None]
  - SPLENECTOMY [None]
  - THROMBOCYTOPENIA [None]
